FAERS Safety Report 24867033 (Version 3)
Quarter: 2025Q3

REPORT INFORMATION
  Report Type: Spontaneous
  Country: CA (occurrence: CA)
  Receive Date: 20250121
  Receipt Date: 20250707
  Transmission Date: 20251021
  Serious: Yes (Other)
  Sender: PFIZER
  Company Number: CA-PFIZER INC-202400260422

PATIENT
  Age: 78 Year
  Sex: Female

DRUGS (24)
  1. RUXIENCE [Suspect]
     Active Substance: RITUXIMAB-PVVR
     Indication: Polymyositis
     Route: 042
     Dates: start: 20220915, end: 20220915
  2. RUXIENCE [Suspect]
     Active Substance: RITUXIMAB-PVVR
     Route: 042
     Dates: start: 20230315, end: 20230315
  3. RUXIENCE [Suspect]
     Active Substance: RITUXIMAB-PVVR
     Route: 042
     Dates: start: 20230915, end: 20230915
  4. RUXIENCE [Suspect]
     Active Substance: RITUXIMAB-PVVR
     Route: 042
     Dates: start: 20240318, end: 20240318
  5. RUXIENCE [Suspect]
     Active Substance: RITUXIMAB-PVVR
     Route: 042
     Dates: start: 20250114
  6. AZATHIOPRINE [Concomitant]
     Active Substance: AZATHIOPRINE
     Route: 048
  7. AMITRIPTYLINE [Concomitant]
     Active Substance: AMITRIPTYLINE
     Route: 048
  8. CALCITRIOL [Concomitant]
     Active Substance: CALCITRIOL
     Route: 048
  9. CALCIUM [Concomitant]
     Active Substance: CALCIUM
     Route: 048
  10. DILTIAZEM [Concomitant]
     Active Substance: DILTIAZEM
     Route: 048
  11. CHOLECALCIFEROL [Concomitant]
     Active Substance: CHOLECALCIFEROL
     Route: 048
  12. ELIQUIS [Concomitant]
     Active Substance: APIXABAN
     Route: 048
  13. FLECAINIDE [Concomitant]
     Active Substance: FLECAINIDE
     Route: 048
  14. FUROSEMIDE [Concomitant]
     Active Substance: FUROSEMIDE
     Route: 048
  15. GESIC [IBUPROFEN] [Concomitant]
     Route: 048
  16. HYDROMORPHONE [Concomitant]
     Active Substance: HYDROMORPHONE
     Route: 042
  17. MOMETASONE [Concomitant]
     Active Substance: MOMETASONE
     Route: 061
  18. PANTOPRAZOLE [Concomitant]
     Active Substance: PANTOPRAZOLE
     Route: 048
  19. PROLIA [Concomitant]
     Active Substance: DENOSUMAB
     Route: 058
  20. PREGABALIN [Concomitant]
     Active Substance: PREGABALIN
     Route: 048
  21. RAMIPRIL [Concomitant]
     Active Substance: RAMIPRIL
     Route: 048
  22. SYNTHROID [Concomitant]
     Active Substance: LEVOTHYROXINE SODIUM
     Route: 048
  23. SPIRONOLACTONE [Concomitant]
     Active Substance: SPIRONOLACTONE
     Route: 048
  24. DICLOFENAC DIETHYLAMINE [Concomitant]
     Active Substance: DICLOFENAC DIETHYLAMINE
     Route: 061

REACTIONS (11)
  - Loss of consciousness [Recovered/Resolved]
  - COVID-19 [Recovered/Resolved]
  - Skin ulcer [Recovered/Resolved]
  - Malaise [Unknown]
  - Arthritis [Unknown]
  - Fall [Recovered/Resolved]
  - Infected skin ulcer [Recovered/Resolved]
  - Influenza [Recovered/Resolved]
  - Limb injury [Recovered/Resolved]
  - Osteoarthritis [Unknown]
  - Spinal osteoarthritis [Unknown]

NARRATIVE: CASE EVENT DATE: 20240101
